FAERS Safety Report 7286353-8 (Version None)
Quarter: 2011Q1

REPORT INFORMATION
  Report Type: 
  Country: None (occurrence: None)
  Receive Date: 20110210
  Receipt Date: 20110209
  Transmission Date: 20110831
  Serious: Yes (Other)
  Sender: FDA-Public Use
  Company Number: AU-PFIZER INC-2011028455

PATIENT
  Sex: Male

DRUGS (1)
  1. ZELDOX [Suspect]
     Dosage: UNK

REACTIONS (1)
  - PULMONARY HYPERTENSION [None]
